FAERS Safety Report 21783878 (Version 10)
Quarter: 2023Q2

REPORT INFORMATION
  Report Type: Spontaneous
  Country: US (occurrence: US)
  Receive Date: 20221227
  Receipt Date: 20230629
  Transmission Date: 20230721
  Serious: No
  Sender: FDA-Public Use
  Company Number: US-PFIZER INC-PV202200129602

PATIENT
  Age: 84 Year
  Sex: Female

DRUGS (1)
  1. PREMARIN [Suspect]
     Active Substance: ESTROGENS, CONJUGATED
     Dosage: UNK

REACTIONS (10)
  - Malaise [Unknown]
  - Dysphemia [Unknown]
  - Illness [Unknown]
  - Feeling abnormal [Unknown]
  - Sleep deficit [Unknown]
  - Nasopharyngitis [Unknown]
  - Gait disturbance [Unknown]
  - Cartilage injury [Unknown]
  - Product dispensing issue [Unknown]
  - Arthralgia [Unknown]
